FAERS Safety Report 7343789-4 (Version None)
Quarter: 2011Q1

REPORT INFORMATION
  Report Type: 
  Country: None (occurrence: None)
  Receive Date: 20110310
  Receipt Date: 20110302
  Transmission Date: 20110831
  Serious: Yes (Other)
  Sender: FDA-Public Use
  Company Number: US-ROCHE-733989

PATIENT
  Sex: Male
  Weight: 61.2 kg

DRUGS (2)
  1. ACCUTANE [Suspect]
     Indication: ACNE
     Route: 065
     Dates: start: 19820601, end: 19821101
  2. ACCUTANE [Suspect]
     Route: 065
     Dates: end: 19830610

REACTIONS (7)
  - POST-TRAUMATIC STRESS DISORDER [None]
  - DEPRESSION [None]
  - IRRITABLE BOWEL SYNDROME [None]
  - GASTROINTESTINAL INJURY [None]
  - COLITIS ULCERATIVE [None]
  - HAEMORRHOIDS [None]
  - INFLAMMATORY BOWEL DISEASE [None]
